FAERS Safety Report 5265967-0 (Version None)
Quarter: 2007Q1

REPORT INFORMATION
  Report Type: 
  Country: None (occurrence: None)
  Receive Date: 20070315
  Receipt Date: 20070301
  Transmission Date: 20070707
  Serious: Yes (Other)
  Sender: FDA-Public Use
  Company Number: PHNU2007DE01045

PATIENT
  Sex: Female

DRUGS (1)
  1. ZOMETA [Suspect]
     Indication: MULTIPLE MYELOMA
     Dosage: 4 MG, QMO
     Route: 042
     Dates: start: 20051101

REACTIONS (4)
  - BLOOD CALCIUM DECREASED [None]
  - BLOOD PARATHYROID HORMONE [None]
  - BLOOD PHOSPHORUS DECREASED [None]
  - HYPERPARATHYROIDISM SECONDARY [None]
